FAERS Safety Report 7351962-4 (Version None)
Quarter: 2011Q1

REPORT INFORMATION
  Report Type: 
  Country: None (occurrence: None)
  Receive Date: 20110315
  Receipt Date: 20110310
  Transmission Date: 20110831
  Serious: No
  Sender: FDA-Public Use
  Company Number: US-PFIZER INC-2010156982

PATIENT
  Sex: Male

DRUGS (1)
  1. TOVIAZ [Suspect]

REACTIONS (2)
  - DRY MOUTH [None]
  - OROPHARYNGEAL PAIN [None]
